FAERS Safety Report 17495308 (Version 1)
Quarter: 2020Q1

REPORT INFORMATION
  Report Type: Other
  Country: MT (occurrence: MT)
  Receive Date: 20200303
  Receipt Date: 20200303
  Transmission Date: 20200409
  Serious: Yes (Hospitalization)
  Sender: FDA-Public Use
  Company Number: MT-GENUS_LIFESCIENCES-USA-POI0580202000190

PATIENT
  Age: 45 Year
  Sex: Male

DRUGS (2)
  1. STILNOX [Concomitant]
     Active Substance: ZOLPIDEM TARTRATE
     Indication: ANXIETY
  2. GOPRELTO [Suspect]
     Active Substance: COCAINE HYDROCHLORIDE
     Indication: PRODUCT USED FOR UNKNOWN INDICATION
     Route: 045
     Dates: start: 2019, end: 2019

REACTIONS (1)
  - Toxic leukoencephalopathy [Recovered/Resolved]

NARRATIVE: CASE EVENT DATE: 20190727
